FAERS Safety Report 9772045 (Version 1)
Quarter: 2013Q4

REPORT INFORMATION
  Report Type: Spontaneous
  Country: US (occurrence: US)
  Receive Date: 20131219
  Receipt Date: 20131219
  Transmission Date: 20140711
  Serious: No
  Sender: FDA-Public Use
  Company Number: US-JNJFOC-20131112938

PATIENT
  Sex: 0

DRUGS (4)
  1. INVEGA [Suspect]
     Indication: PRODUCT USED FOR UNKNOWN INDICATION
     Route: 048
  2. LITHIUM [Concomitant]
     Route: 065
  3. TOPAMAX [Concomitant]
     Route: 048
  4. XANAX [Concomitant]
     Route: 065

REACTIONS (1)
  - Heart rate increased [Unknown]
